FAERS Safety Report 7495866-5 (Version None)
Quarter: 2011Q2

REPORT INFORMATION
  Report Type: 
  Country: None (occurrence: None)
  Receive Date: 20110523
  Receipt Date: 20110519
  Transmission Date: 20111010
  Serious: Yes (Hospitalization)
  Sender: FDA-Public Use
  Company Number: AT-ABBOTT-11P-009-0727309-00

PATIENT
  Age: 55 Year
  Sex: Male
  Weight: 73 kg

DRUGS (14)
  1. PARICALCITOL [Suspect]
     Indication: RENAL FAILURE CHRONIC
     Dates: start: 20101021
  2. ASPIRIN [Concomitant]
     Indication: PRODUCT USED FOR UNKNOWN INDICATION
     Route: 048
     Dates: start: 20101021
  3. BISOPROLOL FUMARATE [Concomitant]
     Indication: PRODUCT USED FOR UNKNOWN INDICATION
     Route: 048
  4. ROCALTROL [Concomitant]
     Route: 048
  5. CARVEDILOL [Concomitant]
     Indication: PRODUCT USED FOR UNKNOWN INDICATION
     Route: 048
     Dates: start: 20101021
  6. RENAGEL [Concomitant]
     Route: 048
  7. ERYPO [Concomitant]
     Indication: PRODUCT USED FOR UNKNOWN INDICATION
     Dosage: 10000 IE
     Route: 058
  8. ROCALTROL [Concomitant]
     Indication: HYPERPARATHYROIDISM SECONDARY
  9. NOVOLOG [Concomitant]
     Indication: PRODUCT USED FOR UNKNOWN INDICATION
     Dosage: 100 E/ML
     Route: 058
  10. RENAGEL [Concomitant]
     Indication: HYPERPARATHYROIDISM SECONDARY
  11. PANTOLOC [Concomitant]
     Indication: PRODUCT USED FOR UNKNOWN INDICATION
     Route: 048
     Dates: start: 20101021
  12. AMLODIPINE [Concomitant]
     Indication: PRODUCT USED FOR UNKNOWN INDICATION
     Route: 048
  13. EBRANTIL [Concomitant]
     Indication: PRODUCT USED FOR UNKNOWN INDICATION
     Route: 048
  14. HALCION [Concomitant]
     Indication: PRODUCT USED FOR UNKNOWN INDICATION
     Route: 048
     Dates: start: 20101230

REACTIONS (2)
  - VOMITING [None]
  - DIZZINESS [None]
